FAERS Safety Report 5856225-1 (Version None)
Quarter: 2008Q3

REPORT INFORMATION
  Report Type: 
  Country: None (occurrence: None)
  Receive Date: 20080825
  Receipt Date: 20080820
  Transmission Date: 20090109
  Serious: Yes (Other)
  Sender: FDA-Public Use
  Company Number: A0744061A

PATIENT
  Age: 53 Year
  Sex: Female
  Weight: 118.2 kg

DRUGS (4)
  1. AVANDIA [Suspect]
     Route: 048
     Dates: end: 20061201
  2. AVANDAMET [Suspect]
     Route: 048
     Dates: start: 20050401
  3. CENESTIN [Concomitant]
     Indication: HORMONE REPLACEMENT THERAPY
  4. XANAX [Concomitant]
     Indication: ANXIETY

REACTIONS (2)
  - MITRAL VALVE INCOMPETENCE [None]
  - PULMONARY HYPERTENSION [None]
